FAERS Safety Report 7626208-X (Version None)
Quarter: 2011Q3

REPORT INFORMATION
  Report Type: 
  Country: None (occurrence: None)
  Receive Date: 20110721
  Receipt Date: 20110708
  Transmission Date: 20111222
  Serious: Yes (Other)
  Sender: FDA-Public Use
  Company Number: PHHY2011US41823

PATIENT
  Sex: Female
  Weight: 52.154 kg

DRUGS (15)
  1. CITRACAL [Concomitant]
     Dosage: 630 MG, BID
  2. SOMA [Concomitant]
     Dosage: 350 MG, UNK
  3. VICODIN [Suspect]
     Dosage: 5/500 MG, QHS
  4. STOOL SOFTENER [Concomitant]
  5. CITRACAL [Concomitant]
     Dosage: 500 OT, BID
  6. DARVOCET-N 50 [Concomitant]
     Dosage: 100/650 MG, 4-6 HRS, PRN
  7. RECLAST [Suspect]
     Indication: OSTEOPOROSIS
     Dosage: 5 MG, ONCE YEAR
     Route: 039
     Dates: start: 20100525
  8. AMITRIPTYLINE HCL [Concomitant]
     Dosage: 50 MG, QHS
  9. CALCIUM CARBONATE [Concomitant]
     Dosage: 1000 MG/DAY
  10. MOBIC [Concomitant]
     Dosage: 7.5 MG, QD
     Route: 048
  11. LISINOPRIL [Concomitant]
     Dosage: 10 MG, QD
     Route: 048
  12. VITAMIN D [Concomitant]
     Dosage: 5000 U, QD
  13. TRAMADOL HCL [Concomitant]
     Dosage: 1 DF, TID
     Route: 048
  14. PRILOSEC [Concomitant]
     Dosage: 20 MG, BID
     Route: 048
  15. VITAMIN D [Concomitant]
     Dosage: 50000 U, QW
     Route: 048

REACTIONS (22)
  - GASTROINTESTINAL DISORDER [None]
  - OSTEOPENIA [None]
  - GAIT DISTURBANCE [None]
  - DYSPNOEA [None]
  - PALPITATIONS [None]
  - ARTHRALGIA [None]
  - GASTROOESOPHAGEAL REFLUX DISEASE [None]
  - OSTEOARTHRITIS [None]
  - BALANCE DISORDER [None]
  - HEART RATE INCREASED [None]
  - GENERAL PHYSICAL CONDITION ABNORMAL [None]
  - MUSCULAR WEAKNESS [None]
  - BLOOD PRESSURE INCREASED [None]
  - OSTEOMYELITIS [None]
  - FRACTURE [None]
  - JOINT SWELLING [None]
  - OSTEONECROSIS OF JAW [None]
  - BACK PAIN [None]
  - PAIN IN JAW [None]
  - ARTHRITIS [None]
  - FATIGUE [None]
  - PAIN [None]
